FAERS Safety Report 5245799-X (Version None)
Quarter: 2007Q1

REPORT INFORMATION
  Report Type: 
  Country: None (occurrence: None)
  Receive Date: 20070216
  Receipt Date: 20070131
  Transmission Date: 20070707
  Serious: Yes (Other)
  Sender: FDA-Public Use
  Company Number: 2007BL000379

PATIENT
  Age: 65 Year
  Sex: Male

DRUGS (1)
  1. RETISERT [Suspect]
     Indication: UVEITIS
     Dosage: 1 DOSE FORM LEFT EYE
     Dates: start: 20050801

REACTIONS (4)
  - CYTOMEGALOVIRUS CHORIORETINITIS [None]
  - MACULAR OEDEMA [None]
  - RETINAL DEGENERATION [None]
  - VITRITIS [None]
